FAERS Safety Report 8247076-1 (Version None)
Quarter: 2012Q1

REPORT INFORMATION
  Report Type: 
  Country: None (occurrence: None)
  Receive Date: 20120330
  Receipt Date: 20120312
  Transmission Date: 20120608
  Serious: Yes (Other)
  Sender: FDA-Public Use
  Company Number: US-ROCHE-1049840

PATIENT
  Sex: Female
  Weight: 56.75 kg

DRUGS (1)
  1. XELODA [Suspect]
     Indication: COLORECTAL CANCER METASTATIC
     Dosage: TWO WEEKS ON ONE WEEK OFF
     Route: 048
     Dates: start: 20120220, end: 20120305

REACTIONS (3)
  - DECREASED APPETITE [None]
  - SMALL BOWEL ANGIOEDEMA [None]
  - DIARRHOEA [None]
